FAERS Safety Report 10811533 (Version 1)
Quarter: 2015Q1

REPORT INFORMATION
  Report Type: Spontaneous
  Country: US (occurrence: None)
  Receive Date: 20150213
  Receipt Date: 20150213
  Transmission Date: 20150721
  Serious: Yes (Other)
  Sender: FDA-Public Use
  Company Number: None

PATIENT
  Age: 40 Year
  Sex: Female
  Weight: 59.88 kg

DRUGS (1)
  1. CLONAZEPAM 0.5 MG MYLAN [Suspect]
     Active Substance: CLONAZEPAM
     Indication: ANXIETY DISORDER
     Dosage: TAKEN BY MOUTH
     Dates: start: 20150210, end: 20150211

REACTIONS (7)
  - Vomiting [None]
  - Product substitution issue [None]
  - Drug ineffective [None]
  - Nausea [None]
  - Motor dysfunction [None]
  - Muscle twitching [None]
  - Drug withdrawal syndrome [None]

NARRATIVE: CASE EVENT DATE: 20150211
